FAERS Safety Report 11373395 (Version 1)
Quarter: 2015Q3

REPORT INFORMATION
  Report Type: Spontaneous
  Country: US (occurrence: US)
  Receive Date: 20150811
  Receipt Date: 20150811
  Transmission Date: 20151125
  Serious: No
  Sender: FDA-Public Use
  Company Number: US-ELI_LILLY_AND_COMPANY-US201210009938

PATIENT
  Sex: Male

DRUGS (2)
  1. ADCIRCA [Suspect]
     Active Substance: TADALAFIL
     Dosage: UNK, UNKNOWN
     Route: 065
  2. LETAIRIS [Concomitant]
     Active Substance: AMBRISENTAN
     Indication: PORTAL HYPERTENSION
     Dosage: 5 MG, QD
     Route: 048
     Dates: start: 20121002

REACTIONS (2)
  - Adverse event [Unknown]
  - Nonspecific reaction [Unknown]
